FAERS Safety Report 25359320 (Version 1)
Quarter: 2025Q2

REPORT INFORMATION
  Report Type: Spontaneous
  Country: US (occurrence: US)
  Receive Date: 20250526
  Receipt Date: 20250526
  Transmission Date: 20250717
  Serious: No
  Sender: ACCORD
  Company Number: US-Accord-468537

PATIENT
  Sex: Female

DRUGS (14)
  1. METHOTREXATE [Suspect]
     Active Substance: METHOTREXATE
     Indication: Product used for unknown indication
  2. TYLENOL [Concomitant]
     Active Substance: ACETAMINOPHEN
  3. BIOTIN [Concomitant]
     Active Substance: BIOTIN
  4. CALCIUM+VIT D [Concomitant]
  5. FOLVITE [Concomitant]
     Active Substance: FOLIC ACID
  6. PLAQUENIL [Concomitant]
     Active Substance: HYDROXYCHLOROQUINE SULFATE
  7. LEVOXYL [Concomitant]
     Active Substance: LEVOTHYROXINE SODIUM
  8. LORATADINE [Concomitant]
     Active Substance: LORATADINE
  9. GINGER [Concomitant]
     Active Substance: GINGER
  10. MAGNESIUM [Concomitant]
     Active Substance: MAGNESIUM
  11. GLUCOPHAGE [Concomitant]
     Active Substance: METFORMIN HYDROCHLORIDE
  12. ALEVE [Concomitant]
     Active Substance: NAPROXEN SODIUM
  13. DELTASONE [Concomitant]
     Active Substance: PREDNISONE
  14. CELLCEPT [Concomitant]
     Active Substance: MYCOPHENOLATE MOFETIL

REACTIONS (2)
  - Liver function test increased [Unknown]
  - Drug intolerance [Unknown]
